FAERS Safety Report 23891941 (Version 1)
Quarter: 2024Q2

REPORT INFORMATION
  Report Type: Spontaneous
  Country: US (occurrence: None)
  Receive Date: 20240524
  Receipt Date: 20240524
  Transmission Date: 20240716
  Serious: No
  Sender: FDA-Public Use
  Company Number: US-ROCHE-3485893

PATIENT
  Age: 54 Year
  Sex: Male

DRUGS (1)
  1. ACTEMRA [Suspect]
     Active Substance: TOCILIZUMAB
     Indication: Ankylosing spondylitis
     Dosage: 400MG/20ML
     Route: 058
     Dates: start: 20201124

REACTIONS (2)
  - Off label use [Unknown]
  - Full blood count decreased [Unknown]
